FAERS Safety Report 20026129 (Version 1)
Quarter: 2021Q4

REPORT INFORMATION
  Report Type: Spontaneous
  Country: US (occurrence: None)
  Receive Date: 20211102
  Receipt Date: 20211102
  Transmission Date: 20220303
  Serious: No
  Sender: FDA-Public Use
  Company Number: 2021A786137

PATIENT
  Sex: Male
  Weight: 86.2 kg

DRUGS (1)
  1. TUDORZA PRESSAIR [Suspect]
     Active Substance: ACLIDINIUM BROMIDE
     Indication: Chronic obstructive pulmonary disease
     Dosage: 400, TWO TIMES A DAY
     Route: 055
     Dates: start: 20211016

REACTIONS (3)
  - Taste disorder [Unknown]
  - Device use error [Unknown]
  - Device malfunction [Unknown]
